FAERS Safety Report 12217020 (Version 1)
Quarter: 2016Q1

REPORT INFORMATION
  Report Type: Spontaneous
  Country: GB (occurrence: GB)
  Receive Date: 20160329
  Receipt Date: 20160329
  Transmission Date: 20160526
  Serious: Yes (Hospitalization)
  Sender: FDA-Public Use
  Company Number: GB-DEXPHARM-20160440

PATIENT
  Age: 74 Year
  Sex: Female

DRUGS (1)
  1. OMEPRAZOLE. [Suspect]
     Active Substance: OMEPRAZOLE
     Indication: BARRETT^S OESOPHAGUS
     Dosage: DAILY DOSE: 80 MG MILLGRAM(S) EVERY DAYS
     Route: 048
     Dates: start: 20150309, end: 20160307

REACTIONS (5)
  - Tremor [Unknown]
  - Blood calcium decreased [Unknown]
  - Hypomagnesaemia [Recovered/Resolved]
  - Cough [Unknown]
  - Vomiting [Unknown]

NARRATIVE: CASE EVENT DATE: 20160305
